FAERS Safety Report 22344663 (Version 2)
Quarter: 2023Q2

REPORT INFORMATION
  Report Type: Report from Study
  Country: US (occurrence: US)
  Receive Date: 20230519
  Receipt Date: 20230529
  Transmission Date: 20230722
  Serious: Yes (Hospitalization)
  Sender: FDA-Public Use
  Company Number: US-TAKEDA-2023TUS049720

PATIENT
  Sex: Female
  Weight: 57 kg

DRUGS (1)
  1. MARIBAVIR [Suspect]
     Active Substance: MARIBAVIR
     Indication: Cytomegalovirus infection
     Dosage: 2 DOSAGE FORM, BID
     Route: 065
     Dates: start: 20230512

REACTIONS (4)
  - Hospitalisation [Unknown]
  - Feeding disorder [Unknown]
  - Weight decreased [Unknown]
  - Taste disorder [Unknown]
